FAERS Safety Report 10028687 (Version 1)
Quarter: 2014Q1

REPORT INFORMATION
  Report Type: Spontaneous
  Country: CH (occurrence: CH)
  Receive Date: 20140321
  Receipt Date: 20140321
  Transmission Date: 20141002
  Serious: Yes (Hospitalization)
  Sender: FDA-Public Use
  Company Number: CH-GLAXOSMITHKLINE-B0978781A

PATIENT
  Age: 21 Year
  Sex: Male

DRUGS (4)
  1. PAZOPANIB [Suspect]
     Indication: EPITHELIOID SARCOMA
     Route: 048
     Dates: start: 20131210, end: 20140313
  2. ACTIQ [Concomitant]
     Dosage: 1400MG PER DAY
     Route: 048
  3. PANTOPRAZOL [Concomitant]
     Dosage: 40MG PER DAY
     Route: 048
  4. CITALOPRAM [Concomitant]
     Dosage: 20MG PER DAY
     Route: 048

REACTIONS (2)
  - Pneumothorax [Unknown]
  - Hypoglycaemia [Unknown]
